FAERS Safety Report 10153349 (Version 1)
Quarter: 2014Q2

REPORT INFORMATION
  Report Type: Spontaneous
  Country: CL (occurrence: CL)
  Receive Date: 20140505
  Receipt Date: 20140505
  Transmission Date: 20141212
  Serious: Yes (Other)
  Sender: FDA-Public Use
  Company Number: CL-ROXANE LABORATORIES, INC.-2014-RO-00686RO

PATIENT
  Age: 64 Year
  Sex: Male

DRUGS (5)
  1. CLOPIDOGREL [Suspect]
     Indication: MYOCARDIAL ISCHAEMIA
     Dosage: 75 MG
     Route: 065
  2. VALSARTAN [Suspect]
     Indication: HYPERTENSION
     Dosage: 80 MG
     Route: 065
  3. ATORVASTATIN [Suspect]
     Indication: PRODUCT USED FOR UNKNOWN INDICATION
     Dosage: 20 MG
     Route: 065
  4. METFORMIN [Concomitant]
     Indication: TYPE 2 DIABETES MELLITUS
     Dosage: 1700 MG
     Route: 065
  5. ASPIRIN [Concomitant]
     Dosage: 100 MG
     Route: 065

REACTIONS (4)
  - Hypogeusia [Recovered/Resolved]
  - Weight decreased [Recovered/Resolved]
  - Blood zinc decreased [Unknown]
  - Decreased appetite [Recovered/Resolved]
